FAERS Safety Report 18766344 (Version 2)
Quarter: 2021Q1

REPORT INFORMATION
  Report Type: Other
  Country: US (occurrence: US)
  Receive Date: 20210121
  Receipt Date: 20210309
  Transmission Date: 20210419
  Serious: Yes (Other)
  Sender: FDA-Public Use
  Company Number: US-ROCHE-2733667

PATIENT
  Age: 73 Year
  Sex: Female
  Weight: 60.38 kg

DRUGS (12)
  1. OCREVUS [Suspect]
     Active Substance: OCRELIZUMAB
     Dosage: YES
     Route: 042
     Dates: start: 20200715
  2. TIMOLOL MALEATE. [Concomitant]
     Active Substance: TIMOLOL MALEATE
     Dosage: 1 DROP PER EYE, STRENGTH=0.5% ;ONGOING: YES
     Route: 047
  3. BENZOLATE [Concomitant]
     Dosage: ONGOING: NO
  4. HYDROCHLOORTHIAZIDE [Concomitant]
     Active Substance: HYDROCHLOROTHIAZIDE
     Dosage: ONGOING: YES
     Route: 048
  5. OCREVUS [Suspect]
     Active Substance: OCRELIZUMAB
     Indication: PRIMARY PROGRESSIVE MULTIPLE SCLEROSIS
     Route: 042
     Dates: start: 20200115, end: 20200129
  6. TYLENOL [Concomitant]
     Active Substance: ACETAMINOPHEN
     Dosage: ONGOING: YES
  7. BENADRYL [Concomitant]
     Active Substance: DIPHENHYDRAMINE HYDROCHLORIDE
     Indication: PREMEDICATION
     Dates: start: 20210120
  8. OCREVUS [Suspect]
     Active Substance: OCRELIZUMAB
     Route: 042
     Dates: start: 20200115
  9. CYCLOBENZAPRINE HCL [Concomitant]
     Active Substance: CYCLOBENZAPRINE HYDROCHLORIDE
     Dosage: AS NEEDED ;ONGOING: UNKNOWN
  10. SIMETHICONE (DIMETHICONE) [Concomitant]
     Active Substance: DIMETHICONE
     Indication: RETCHING
     Route: 048
  11. IPRATROPIUM BROMIDE. [Concomitant]
     Active Substance: IPRATROPIUM BROMIDE
     Dosage: 2 SPRAYS PER NOSTRIL, TAKEN UP TO 2 TIMES A DAY ;ONGOING: YES
     Route: 045
  12. OMEPRAZOLE. [Concomitant]
     Active Substance: OMEPRAZOLE
     Dosage: ONGOING: YES

REACTIONS (17)
  - Body height decreased [Unknown]
  - Weight increased [Not Recovered/Not Resolved]
  - Urinary tract infection [Unknown]
  - Cystitis [Recovered/Resolved]
  - Blood urine present [Recovered/Resolved]
  - Fatigue [Unknown]
  - Fall [Unknown]
  - Arthritis [Unknown]
  - Emotional disorder [Not Recovered/Not Resolved]
  - Hair growth abnormal [Not Recovered/Not Resolved]
  - Flushing [Recovered/Resolved]
  - Arthropathy [Unknown]
  - Arthralgia [Not Recovered/Not Resolved]
  - Feeling hot [Not Recovered/Not Resolved]
  - Muscle spasms [Not Recovered/Not Resolved]
  - Crying [Not Recovered/Not Resolved]
  - Pruritus [Recovered/Resolved]

NARRATIVE: CASE EVENT DATE: 20200115
